FAERS Safety Report 5637812-2 (Version None)
Quarter: 2008Q1

REPORT INFORMATION
  Report Type: 
  Country: None (occurrence: None)
  Receive Date: 20080220
  Receipt Date: 20080214
  Transmission Date: 20080703
  Serious: Yes (Death, Other)
  Sender: FDA-Public Use
  Company Number: 163-21880-08020056

PATIENT
  Age: 77 Year
  Sex: Male

DRUGS (1)
  1. REVLIMID [Suspect]
     Indication: MYELODYSPLASTIC SYNDROME
     Dosage: 5 MG, ORAL
     Route: 048
     Dates: start: 20070427, end: 20070427

REACTIONS (6)
  - BLOOD COUNT ABNORMAL [None]
  - DISEASE PROGRESSION [None]
  - INFECTION [None]
  - MYELODYSPLASTIC SYNDROME [None]
  - RASH PRURITIC [None]
  - SEPSIS [None]
